FAERS Safety Report 11176579 (Version 1)
Quarter: 2015Q2

REPORT INFORMATION
  Report Type: Spontaneous
  Country: US (occurrence: None)
  Receive Date: 20150608
  Receipt Date: 20150608
  Transmission Date: 20150821
  Serious: Yes (Other)
  Sender: FDA-Public Use
  Company Number: 54973 AE#1607

PATIENT
  Sex: Female

DRUGS (1)
  1. BABY TEETHING [Suspect]
     Active Substance: ARABICA COFFEE BEAN\ATROPA BELLADONNA\CALCIUM PHOSPHATE\CHAMOMILE
     Indication: TEETHING
     Dosage: 2 TQBW SL X 1 DOSE

REACTIONS (7)
  - Gait disturbance [None]
  - Confusional state [None]
  - Crying [None]
  - Mydriasis [None]
  - Dysstasia [None]
  - Toxicity to various agents [None]
  - Altered state of consciousness [None]

NARRATIVE: CASE EVENT DATE: 201505
